FAERS Safety Report 5280043-9 (Version None)
Quarter: 2007Q1

REPORT INFORMATION
  Report Type: 
  Country: None (occurrence: None)
  Receive Date: 20070329
  Receipt Date: 20070315
  Transmission Date: 20070707
  Serious: Yes (Hospitalization)
  Sender: FDA-Public Use
  Company Number: GB-JNJFOC-20070303779

PATIENT

DRUGS (1)
  1. INFLIXIMAB [Suspect]
     Indication: ALLERGIC GRANULOMATOUS ANGIITIS
     Dosage: 2 INFLIXIMAB INFUSIONS, DATES UNSPECIFIED
     Route: 042

REACTIONS (2)
  - BRAIN STEM SYNDROME [None]
  - LUPUS-LIKE SYNDROME [None]
